FAERS Safety Report 5242052-5 (Version None)
Quarter: 2007Q1

REPORT INFORMATION
  Report Type: 
  Country: None (occurrence: None)
  Receive Date: 20070212
  Receipt Date: 20070126
  Transmission Date: 20070707
  Serious: Yes (Other)
  Sender: FDA-Public Use
  Company Number: DSA_61329_2006

PATIENT
  Age: 4 Year
  Sex: Male
  Weight: 17.2367 kg

DRUGS (1)
  1. DIASTAT [Suspect]
     Indication: CONVULSION
     Dosage: 7.5 MG PRN RC
     Dates: start: 20060101

REACTIONS (5)
  - CONVULSION [None]
  - DEVICE LEAKAGE [None]
  - MEDICAL DEVICE COMPLICATION [None]
  - PHARMACEUTICAL PRODUCT COMPLAINT [None]
  - THERAPEUTIC RESPONSE DELAYED [None]
